FAERS Safety Report 8882865 (Version 1)
Quarter: 2012Q4

REPORT INFORMATION
  Report Type: 
  Country: US (occurrence: US)
  Receive Date: 20121102
  Receipt Date: 20121102
  Transmission Date: 20130627
  Serious: No
  Sender: FDA-Public Use
  Company Number: US-ASTRAZENECA-2011SE70263

PATIENT
  Age: 67 Year
  Sex: Female
  Weight: 68.5 kg

DRUGS (8)
  1. CRESTOR [Suspect]
     Route: 048
     Dates: start: 201108, end: 2011
  2. LIPITOR [Suspect]
     Indication: BLOOD CHOLESTEROL INCREASED
     Dates: start: 201109
  3. LIPITOR [Suspect]
     Indication: CARDIAC DISORDER
     Dates: start: 201109
  4. DIOVAN [Concomitant]
     Indication: BLOOD PRESSURE ABNORMAL
  5. BABY ASPIRIN [Concomitant]
  6. POTASSIUM [Concomitant]
     Indication: MINERAL SUPPLEMENTATION
  7. AMIODARON [Concomitant]
     Indication: HEART RATE ABNORMAL
  8. COUMADIN [Concomitant]
     Indication: ANTICOAGULANT THERAPY

REACTIONS (2)
  - Myalgia [Unknown]
  - Limb discomfort [Not Recovered/Not Resolved]
